FAERS Safety Report 11970714 (Version 1)
Quarter: 2016Q1

REPORT INFORMATION
  Report Type: Spontaneous
  Country: US (occurrence: None)
  Receive Date: 20160126
  Receipt Date: 20160126
  Transmission Date: 20160526
  Serious: Yes (Other)
  Sender: FDA-Public Use
  Company Number: None

PATIENT
  Age: 61 Year
  Sex: Male
  Weight: 72.9 kg

DRUGS (2)
  1. TRAMETINIB [Suspect]
     Active Substance: TRAMETINIB
     Indication: RHABDOMYOLYSIS
     Route: 048
     Dates: start: 20151127, end: 20151220
  2. DABRAFENIB [Suspect]
     Active Substance: DABRAFENIB
     Indication: RHABDOMYOLYSIS
     Route: 048
     Dates: start: 20151127, end: 20151220

REACTIONS (8)
  - Pyrexia [None]
  - Chills [None]
  - Arthralgia [None]
  - Blood creatine phosphokinase increased [None]
  - Hepatic enzyme increased [None]
  - Myalgia [None]
  - Gait disturbance [None]
  - Rash [None]

NARRATIVE: CASE EVENT DATE: 20151222
